FAERS Safety Report 21918178 (Version 6)
Quarter: 2025Q1

REPORT INFORMATION
  Report Type: Spontaneous
  Country: US (occurrence: US)
  Receive Date: 20230127
  Receipt Date: 20250313
  Transmission Date: 20250409
  Serious: No
  Sender: BIOGEN
  Company Number: US-BIOGEN-2023BI01183596

PATIENT
  Age: 64 Year
  Sex: Female

DRUGS (1)
  1. TYSABRI [Suspect]
     Active Substance: NATALIZUMAB
     Indication: Multiple sclerosis
     Dosage: 300 MILLIGRAM PER GRAM?START DATE 17-MAR-2023
     Route: 050

REACTIONS (7)
  - Memory impairment [Unknown]
  - Gait disturbance [Unknown]
  - Stress [Unknown]
  - Confusional state [Unknown]
  - Malaise [Unknown]
  - Cognitive disorder [Unknown]
  - Headache [Recovered/Resolved]

NARRATIVE: CASE EVENT DATE: 20230125
